FAERS Safety Report 15234616 (Version 1)
Quarter: 2018Q4

REPORT INFORMATION
  Report Type: Spontaneous
  Country: DE (occurrence: DE)
  Receive Date: 20180803
  Receipt Date: 20180803
  Transmission Date: 20190204
  Serious: Yes (Life-Threatening, Hospitalization, Other)
  Sender: FDA-Public Use
  Company Number: DE-TEVA-2018-DE-933454

PATIENT
  Age: 75 Year
  Sex: Female

DRUGS (2)
  1. EZETIMIB RATIOPHARM 10MG [Suspect]
     Active Substance: EZETIMIBE
     Indication: HYPERCHOLESTEROLAEMIA
     Route: 065
  2. ATORVASTATIN RATIOPHARM 80 MG [Suspect]
     Active Substance: ATORVASTATIN
     Indication: HYPERCHOLESTEROLAEMIA
     Dosage: 80 MILLIGRAM DAILY; 0-0-1
     Route: 065
     Dates: start: 2007

REACTIONS (4)
  - Renal failure [Unknown]
  - Hepatitis cholestatic [Unknown]
  - Toxicity to various agents [Unknown]
  - Rhabdomyolysis [Unknown]

NARRATIVE: CASE EVENT DATE: 2018
